FAERS Safety Report 7165787-6 (Version None)
Quarter: 2010Q4

REPORT INFORMATION
  Report Type: 
  Country: None (occurrence: None)
  Receive Date: 20101215
  Receipt Date: 20100104
  Transmission Date: 20110411
  Serious: No
  Sender: FDA-Public Use
  Company Number: US-AMGEN-KDL383536

PATIENT

DRUGS (7)
  1. ENBREL [Suspect]
     Indication: PRODUCT USED FOR UNKNOWN INDICATION
     Dosage: 50 MG, 2 TIMES/WK
     Route: 058
  2. CLONAZEPAM [Concomitant]
     Dosage: .5 MG, UNK
  3. VENLAFAXINE HCL [Concomitant]
     Dosage: 75 MG, UNK
  4. BUPROPION [Concomitant]
     Dosage: 100 MG, UNK
  5. TOPROL-XL [Concomitant]
     Dosage: 25 MG, UNK
  6. MELOXICAM [Concomitant]
     Dosage: 7.5 MG, UNK
  7. EZETIMIBE [Concomitant]
     Dosage: 10 MG, UNK

REACTIONS (2)
  - COUGH [None]
  - SINUSITIS [None]
